FAERS Safety Report 11280380 (Version 1)
Quarter: 2015Q3

REPORT INFORMATION
  Report Type: Spontaneous
  Country: US (occurrence: US)
  Receive Date: 20150717
  Receipt Date: 20150717
  Transmission Date: 20151125
  Serious: No
  Sender: FDA-Public Use
  Company Number: US-JNJFOC-20150605700

PATIENT
  Age: 87 Year
  Sex: Male
  Weight: 75.3 kg

DRUGS (5)
  1. ISORDIL [Concomitant]
     Active Substance: ISOSORBIDE DINITRATE
     Route: 065
  2. METOPROLOL [Concomitant]
     Active Substance: METOPROLOL
     Route: 065
  3. DIOVAN [Concomitant]
     Active Substance: VALSARTAN
     Route: 065
  4. VITAMIN D [Concomitant]
     Active Substance: CHOLECALCIFEROL
     Route: 065
  5. XARELTO [Suspect]
     Active Substance: RIVAROXABAN
     Indication: PULMONARY EMBOLISM
     Route: 048
     Dates: start: 20150606

REACTIONS (3)
  - Nausea [Unknown]
  - Retching [Recovered/Resolved]
  - Eructation [Unknown]

NARRATIVE: CASE EVENT DATE: 20150607
